FAERS Safety Report 6424104-7 (Version None)
Quarter: 2009Q4

REPORT INFORMATION
  Report Type: 
  Country: None (occurrence: None)
  Receive Date: 20091102
  Receipt Date: 20091020
  Transmission Date: 20100525
  Serious: Yes (Disabling, Other)
  Sender: FDA-Public Use
  Company Number: PHEH2008US08678

PATIENT
  Sex: Female

DRUGS (4)
  1. ZOMETA [Suspect]
     Route: 042
  2. FOSAMAX [Suspect]
  3. LEXAPRO [Concomitant]
  4. MICARDIS [Concomitant]

REACTIONS (16)
  - ABSCESS [None]
  - ANHEDONIA [None]
  - ANXIETY [None]
  - CHEST PAIN [None]
  - FAECAL INCONTINENCE [None]
  - INJURY [None]
  - LIP AND/OR ORAL CAVITY CANCER [None]
  - LIP DISCOLOURATION [None]
  - LUNG LOBECTOMY [None]
  - LUNG NEOPLASM MALIGNANT [None]
  - NEUROPATHY PERIPHERAL [None]
  - OSTEONECROSIS [None]
  - PAIN [None]
  - THORACOTOMY [None]
  - TIBIA FRACTURE [None]
  - TOOTH DISORDER [None]
